FAERS Safety Report 19155004 (Version 3)
Quarter: 2021Q4

REPORT INFORMATION
  Report Type: Spontaneous
  Country: IN (occurrence: IN)
  Receive Date: 20210419
  Receipt Date: 20211112
  Transmission Date: 20220303
  Serious: Yes (Other)
  Sender: FDA-Public Use
  Company Number: IN-PFIZER INC-2021377822

PATIENT
  Age: 76 Year
  Sex: Female

DRUGS (2)
  1. PALBOCICLIB [Suspect]
     Active Substance: PALBOCICLIB
     Indication: Breast cancer metastatic
     Dosage: 125 MG, 1X/DAY
     Route: 048
     Dates: start: 20191221, end: 202110
  2. FULVESTRANT [Concomitant]
     Active Substance: FULVESTRANT
     Indication: Disease progression
     Dosage: UNK
     Dates: start: 202002

REACTIONS (2)
  - Second primary malignancy [Unknown]
  - Oesophageal carcinoma [Unknown]
